FAERS Safety Report 5257562-4 (Version None)
Quarter: 2007Q1

REPORT INFORMATION
  Report Type: 
  Country: None (occurrence: None)
  Receive Date: 20070307
  Receipt Date: 20060915
  Transmission Date: 20070707
  Serious: No
  Sender: FDA-Public Use
  Company Number: US-GLAXOSMITHKLINE-A0620335A

PATIENT
  Age: 32 Year
  Sex: Female

DRUGS (6)
  1. REQUIP [Suspect]
     Indication: RESTLESS LEGS SYNDROME
     Dosage: 2MG PER DAY
     Route: 048
     Dates: start: 20060701
  2. SYNTHROID [Concomitant]
  3. HUMALOG [Concomitant]
  4. CYMBALTA [Concomitant]
  5. AMBIEN [Concomitant]
  6. KLONOPIN [Concomitant]

REACTIONS (1)
  - ARTHRALGIA [None]
